FAERS Safety Report 16260367 (Version 1)
Quarter: 2019Q2

REPORT INFORMATION
  Report Type: Spontaneous
  Country: US (occurrence: US)
  Receive Date: 20190327
  Receipt Date: 20190327
  Transmission Date: 20190711
  Serious: Yes (Hospitalization)
  Sender: FDA-Public Use
  Company Number: None

PATIENT
  Age: 79 Year
  Sex: Male

DRUGS (16)
  1. COREQ [Concomitant]
  2. ATORVASTATIN [Concomitant]
     Active Substance: ATORVASTATIN
  3. CILOSTAZOLE [Concomitant]
     Active Substance: CILOSTAZOL
  4. MOVANTIK [Concomitant]
     Active Substance: NALOXEGOL OXALATE
  5. PREDNISONE. [Concomitant]
     Active Substance: PREDNISONE
  6. ZYTIGA [Suspect]
     Active Substance: ABIRATERONE ACETATE
     Indication: PROSTATE CANCER
     Route: 048
     Dates: start: 20181102
  7. FELODIPINE. [Concomitant]
     Active Substance: FELODIPINE
  8. ISOSORBIDE. [Concomitant]
     Active Substance: ISOSORBIDE
  9. OXYCODONE [Concomitant]
     Active Substance: OXYCODONE
  10. LISINOPRIL. [Concomitant]
     Active Substance: LISINOPRIL
  11. NITROSTAT [Concomitant]
     Active Substance: NITROGLYCERIN
  12. OXYBUTYNIN. [Concomitant]
     Active Substance: OXYBUTYNIN CHLORIDE
  13. LUPRON [Concomitant]
     Active Substance: LEUPROLIDE ACETATE
  14. PLAVIX [Concomitant]
     Active Substance: CLOPIDOGREL BISULFATE
  15. PROZAC [Concomitant]
     Active Substance: FLUOXETINE HYDROCHLORIDE
  16. ARICEPT [Concomitant]
     Active Substance: DONEPEZIL HYDROCHLORIDE

REACTIONS (1)
  - Pneumonia [None]
